FAERS Safety Report 18276126 (Version 1)
Quarter: 2020Q3

REPORT INFORMATION
  Report Type: Spontaneous
  Country: US (occurrence: US)
  Receive Date: 20200917
  Receipt Date: 20200917
  Transmission Date: 20201103
  Serious: No
  Sender: FDA-Public Use
  Company Number: US-BION-008376

PATIENT
  Sex: Male

DRUGS (1)
  1. CETIRIZINE 10 MG SOFTGELS 40 CT UNKNOWN [Suspect]
     Active Substance: CETIRIZINE HYDROCHLORIDE
     Indication: SINUS DISORDER

REACTIONS (2)
  - Fatigue [Unknown]
  - Product use in unapproved indication [Not Recovered/Not Resolved]
